FAERS Safety Report 11070419 (Version 2)
Quarter: 2015Q2

REPORT INFORMATION
  Report Type: Report from Study
  Country: CA (occurrence: CA)
  Receive Date: 20150427
  Receipt Date: 20150511
  Transmission Date: 20150821
  Serious: Yes (Life-Threatening, Hospitalization)
  Sender: FDA-Public Use
  Company Number: PHHY2015CA008380

PATIENT
  Age: 78 Year
  Sex: Female

DRUGS (2)
  1. SANDOSTATIN [Suspect]
     Active Substance: OCTREOTIDE ACETATE
     Indication: SUBILEUS
     Dosage: 50 UG, BID (CONT. 2 WEEKS POST 1ST LAR)
     Route: 058
     Dates: start: 20141229, end: 201502
  2. SANDOSTATIN LAR DEPOT [Suspect]
     Active Substance: OCTREOTIDE ACETATE
     Indication: SUBILEUS
     Dosage: 20 MG, EVERY FOUR WEEKS
     Route: 030
     Dates: start: 20150119, end: 20150324

REACTIONS (14)
  - Blood pressure diastolic decreased [Unknown]
  - Muscle spasms [Unknown]
  - Neuropathy peripheral [Unknown]
  - Off label use [Unknown]
  - Injection site pain [Unknown]
  - Wrong technique in drug usage process [Unknown]
  - Musculoskeletal stiffness [Unknown]
  - Terminal state [Unknown]
  - Gait disturbance [Unknown]
  - Fatigue [Unknown]
  - Balance disorder [Unknown]
  - Muscle swelling [Unknown]
  - Arrhythmia [Unknown]
  - Pain in extremity [Not Recovered/Not Resolved]

NARRATIVE: CASE EVENT DATE: 20150119
